APPROVED DRUG PRODUCT: ROFLUMILAST
Active Ingredient: ROFLUMILAST
Strength: 500MCG
Dosage Form/Route: TABLET;ORAL
Application: A208272 | Product #001
Applicant: TORRENT PHARMACEUTICALS LTD
Approved: Aug 6, 2018 | RLD: No | RS: No | Type: DISCN